FAERS Safety Report 25329275 (Version 1)
Quarter: 2025Q2

REPORT INFORMATION
  Report Type: Spontaneous
  Country: NL (occurrence: NL)
  Receive Date: 20250519
  Receipt Date: 20250519
  Transmission Date: 20250717
  Serious: Yes (Death)
  Sender: DR REDDYS
  Company Number: None

PATIENT
  Age: 83 Year
  Sex: Female
  Weight: 62 kg

DRUGS (15)
  1. TICAGRELOR [Suspect]
     Active Substance: TICAGRELOR
     Indication: Chest pain
     Dosage: 1 PIECE 2 X PER DAY?TABLET 90MG / BRAND NAME NOT SPECIFIED
     Route: 048
     Dates: start: 20250207
  2. TICAGRELOR [Suspect]
     Active Substance: TICAGRELOR
     Indication: Acute myocardial infarction
  3. ROSUVASTATIN [Suspect]
     Active Substance: ROSUVASTATIN
     Indication: Hypercholesterolaemia
     Dosage: 1 X PER DAY 1 PIECE?40MG TABLET
     Route: 048
     Dates: start: 20250217, end: 20250314
  4. ISOSORBIDEDINITRAAT TABLET SUBLINGUAAL 5MG / Brand name not specified [Concomitant]
     Indication: Product used for unknown indication
     Route: 060
  5. PERINDOPRIL TABLET 2MG (ERBUMINE) / Brand name not specified [Concomitant]
     Indication: Product used for unknown indication
     Route: 048
  6. METOPROLOL TABLET MGA  50MG (SUCCINAAT) / Brand name not specified [Concomitant]
     Indication: Product used for unknown indication
     Route: 048
  7. DIAZEPAM TABLET  5MG / Brand name not specified [Concomitant]
     Indication: Product used for unknown indication
     Route: 048
  8. ISOSORBIDEMONONITRAAT CAPSULE MGA  25MG / Brand name not specified [Concomitant]
     Indication: Product used for unknown indication
     Route: 048
  9. ASPIRIN [Concomitant]
     Active Substance: ASPIRIN
     Indication: Product used for unknown indication
     Route: 048
  10. PANTOPRAZOLE [Concomitant]
     Active Substance: PANTOPRAZOLE
     Indication: Product used for unknown indication
     Route: 048
  11. HYDROCHLOROTHIAZIDE [Concomitant]
     Active Substance: HYDROCHLOROTHIAZIDE
     Indication: Product used for unknown indication
     Route: 048
  12. TIOTROPIUM BROMIDE [Concomitant]
     Active Substance: TIOTROPIUM BROMIDE
     Indication: Product used for unknown indication
     Route: 055
  13. OXAZEPAM [Concomitant]
     Active Substance: OXAZEPAM
     Indication: Product used for unknown indication
     Route: 048
  14. DOMPERIDONE [Concomitant]
     Active Substance: DOMPERIDONE
     Indication: Product used for unknown indication
     Route: 048
  15. BECLOMETASON AEROSOL 100UG/DO / Brand name not specified [Concomitant]
     Indication: Product used for unknown indication
     Route: 055

REACTIONS (2)
  - Rhabdomyolysis [Fatal]
  - Drug interaction [Fatal]
